FAERS Safety Report 16661870 (Version 2)
Quarter: 2019Q4

REPORT INFORMATION
  Report Type: Spontaneous
  Country: AT (occurrence: AT)
  Receive Date: 20190802
  Receipt Date: 20191118
  Transmission Date: 20200122
  Serious: Yes (Hospitalization, Other)
  Sender: FDA-Public Use
  Company Number: AT-SA-2019SA180323

PATIENT
  Age: 55 Year
  Sex: Female

DRUGS (16)
  1. BIPERIDEN [Suspect]
     Active Substance: BIPERIDEN
     Dosage: 8 MG, UNK
     Route: 065
     Dates: start: 2014, end: 20190506
  2. PREGABALIN. [Suspect]
     Active Substance: PREGABALIN
     Dosage: 600 UNK
     Route: 065
     Dates: start: 20190429, end: 20190512
  3. RISPERIDONE. [Suspect]
     Active Substance: RISPERIDONE
     Indication: SCHIZOPHRENIA
     Dosage: 6 MG, UNK
     Route: 048
     Dates: start: 2018, end: 20190423
  4. DELPRAL [Suspect]
     Active Substance: TIAPRIDE HYDROCHLORIDE
     Indication: SCHIZOPHRENIA
     Dosage: 200 MG, UNK
     Route: 065
     Dates: start: 20190419, end: 20190513
  5. PROPRANOLOL HYDROCHLORIDE. [Suspect]
     Active Substance: PROPRANOLOL HYDROCHLORIDE
     Indication: SCHIZOPHRENIA
     Dosage: UNK UNK, 30-40 MG
     Route: 065
     Dates: start: 2018, end: 20190512
  6. CLOZAPINE. [Suspect]
     Active Substance: CLOZAPINE
     Indication: SCHIZOPHRENIA
     Dosage: UNK UNK, UNK25-50 MG
     Route: 065
     Dates: start: 20190423, end: 20190428
  7. TAMSULOSIN HYDROCHLORIDE. [Suspect]
     Active Substance: TAMSULOSIN HYDROCHLORIDE
     Indication: PRODUCT USED FOR UNKNOWN INDICATION
     Dosage: 0.4 MG, UNK
     Route: 065
     Dates: start: 2014
  8. PREGABALIN. [Suspect]
     Active Substance: PREGABALIN
     Dosage: 400 UNK
     Route: 065
     Dates: start: 20190513
  9. CLOZAPINE. [Suspect]
     Active Substance: CLOZAPINE
     Dosage: 125 UNK
     Route: 065
     Dates: start: 20190503, end: 20190505
  10. CLOZAPINE. [Suspect]
     Active Substance: CLOZAPINE
     Dosage: 75 MG
     Route: 065
     Dates: start: 20190506, end: 20190506
  11. QUETIAPINE FUMARATE. [Suspect]
     Active Substance: QUETIAPINE FUMARATE
     Dosage: 700 MG, UNK
     Route: 048
     Dates: start: 2014, end: 201905
  12. RISPERIDONE. [Suspect]
     Active Substance: RISPERIDONE
     Dosage: UNK,2-4 MG
     Route: 048
     Dates: start: 20190424, end: 20190521
  13. CLOZAPINE. [Suspect]
     Active Substance: CLOZAPINE
     Dosage: 75 MG, UNK
     Route: 065
     Dates: start: 20190508, end: 20190512
  14. THYREX [Concomitant]
     Active Substance: LEVOTHYROXINE SODIUM
     Dosage: 0.05 MG, UNK
     Route: 065
     Dates: start: 2014
  15. PREGABALIN. [Suspect]
     Active Substance: PREGABALIN
     Indication: PRODUCT USED FOR UNKNOWN INDICATION
     Dosage: 400 MG, UNK
     Route: 065
     Dates: start: 2018, end: 20190428
  16. CLOZAPINE. [Suspect]
     Active Substance: CLOZAPINE
     Dosage: 75-100 MG
     Route: 065
     Dates: start: 20190429, end: 20190505

REACTIONS (3)
  - Delirium [Recovered/Resolved]
  - Pneumonia [Unknown]
  - Dyskinesia [Recovering/Resolving]

NARRATIVE: CASE EVENT DATE: 20190505
